FAERS Safety Report 9050304 (Version 1)
Quarter: 2013Q1

REPORT INFORMATION
  Report Type: Spontaneous
  Country: JP (occurrence: JP)
  Receive Date: 20130205
  Receipt Date: 20130205
  Transmission Date: 20140127
  Serious: No
  Sender: FDA-Public Use
  Company Number: PHHY2012JP121181

PATIENT
  Age: 39 None
  Sex: Male

DRUGS (6)
  1. SALAGEN [Suspect]
     Indication: DRY MOUTH
     Dosage: 5 MG, TID
     Route: 048
     Dates: start: 20080118, end: 20080207
  2. PARIET [Concomitant]
     Indication: PROPHYLAXIS AGAINST GASTROINTESTINAL ULCER
     Dosage: 1 DF, PER DAY
     Route: 048
  3. MUCOSTA [Concomitant]
     Indication: PROPHYLAXIS AGAINST GASTROINTESTINAL ULCER
     Dosage: 3 DF PER DAY
     Route: 048
  4. ALLELOCK [Concomitant]
     Indication: HYPERSENSITIVITY
     Dosage: 2 DF, PER DAY
     Route: 048
  5. LAC-B [Concomitant]
     Indication: DIARRHOEA
     Dosage: 3 DF, PER DAY
     Route: 048
  6. BAKTAR [Concomitant]
     Indication: ANTIBIOTIC PROPHYLAXIS
     Dosage: 12 DF, PER DAY
     Route: 048

REACTIONS (2)
  - Photophobia [Recovered/Resolved]
  - Hyperhidrosis [Recovered/Resolved]
